FAERS Safety Report 5593431-8 (Version None)
Quarter: 2007Q4

REPORT INFORMATION
  Report Type: 
  Country: None (occurrence: None)
  Receive Date: 20071218
  Receipt Date: 20070405
  Transmission Date: 20080405
  Serious: Yes (Other)
  Sender: FDA-Public Use
  Company Number: 2006149429

PATIENT
  Sex: Female
  Weight: 86.2 kg

DRUGS (3)
  1. BEXTRA [Suspect]
     Indication: INFLAMMATION
     Dosage: 10 MG (1 IN 1 D)
     Dates: start: 20020701, end: 20050101
  2. BEXTRA [Suspect]
     Indication: OSTEOARTHRITIS
     Dosage: 10 MG (1 IN 1 D)
     Dates: start: 20020701, end: 20050101
  3. BEXTRA [Suspect]
     Indication: PAIN MANAGEMENT
     Dosage: 10 MG (1 IN 1 D)
     Dates: start: 20020701, end: 20050101

REACTIONS (1)
  - PULMONARY EMBOLISM [None]
